FAERS Safety Report 15099435 (Version 8)
Quarter: 2018Q4

REPORT INFORMATION
  Report Type: Spontaneous
  Country: US (occurrence: US)
  Receive Date: 20180702
  Receipt Date: 20181211
  Transmission Date: 20190204
  Serious: Yes (Death, Hospitalization)
  Sender: FDA-Public Use
  Company Number: US-ACTELION-A-US2018-174556

PATIENT
  Age: 13 Month
  Sex: Male

DRUGS (5)
  1. ALDACTONE [Concomitant]
     Active Substance: SPIRONOLACTONE
     Dosage: 7 MG, Q12HRS
  2. TRACLEER [Suspect]
     Active Substance: BOSENTAN
     Indication: PULMONARY ARTERIAL HYPERTENSION
     Dosage: 10.6 MG, Q12HRS
     Route: 048
     Dates: start: 20180215
  3. BUMEX [Concomitant]
     Active Substance: BUMETANIDE
     Dosage: UNK
  4. TRACLEER [Suspect]
     Active Substance: BOSENTAN
     Dosage: 14.4 MG, BID
     Route: 048
     Dates: start: 20180421
  5. SILDENAFIL. [Concomitant]
     Active Substance: SILDENAFIL
     Indication: PULMONARY ARTERIAL HYPERTENSION
     Dosage: 3.2 MG, Q6HRS

REACTIONS (3)
  - Pyrexia [Fatal]
  - Product dose omission [Unknown]
  - Respiratory disorder [Unknown]
